FAERS Safety Report 8839992 (Version 1)
Quarter: 2012Q4

REPORT INFORMATION
  Report Type: 
  Country: US (occurrence: US)
  Receive Date: 20121015
  Receipt Date: 20121015
  Transmission Date: 20130627
  Serious: No
  Sender: FDA-Public Use
  Company Number: US-PFIZER INC-2012253127

PATIENT
  Sex: Male

DRUGS (1)
  1. ADVIL PM [Suspect]
     Dosage: UNK, daily at night

REACTIONS (1)
  - Pain in extremity [Not Recovered/Not Resolved]
